FAERS Safety Report 22118504 (Version 1)
Quarter: 2023Q1

REPORT INFORMATION
  Report Type: Report from Study
  Country: US (occurrence: None)
  Receive Date: 20230321
  Receipt Date: 20230321
  Transmission Date: 20230417
  Serious: Yes (Death)
  Sender: FDA-Public Use
  Company Number: US-ROCHE-3313212

PATIENT

DRUGS (2)
  1. ATEZOLIZUMAB [Suspect]
     Active Substance: ATEZOLIZUMAB
     Indication: Neoplasm
     Dosage: LAST DOSE RECEIVED 01/JUN/2017
     Route: 042
     Dates: start: 20170421, end: 20180223
  2. BEVACIZUMAB [Suspect]
     Active Substance: BEVACIZUMAB
     Indication: Neoplasm
     Dosage: LAST DOSE RECEIVED ON 01/JUN/2017
     Route: 042
     Dates: start: 20170421, end: 20180223

REACTIONS (1)
  - Death [Fatal]

NARRATIVE: CASE EVENT DATE: 20180223
